FAERS Safety Report 9761413 (Version 1)
Quarter: 2013Q4

REPORT INFORMATION
  Report Type: Spontaneous
  Country: US (occurrence: US)
  Receive Date: 20131216
  Receipt Date: 20131216
  Transmission Date: 20140711
  Serious: No
  Sender: FDA-Public Use
  Company Number: US-BAYER-2013-148067

PATIENT
  Age: 32 Year
  Sex: Male
  Weight: 127 kg

DRUGS (2)
  1. ALEVE CAPLET [Suspect]
     Dosage: 4 DF, ONCE
     Route: 048
     Dates: start: 20131201, end: 20131201
  2. ALEVE CAPLET [Suspect]
     Dosage: 2 DF, ONCE
     Route: 048
     Dates: start: 20131202, end: 20131202

REACTIONS (4)
  - Extra dose administered [None]
  - Vision blurred [Recovered/Resolved]
  - Dizziness [Recovered/Resolved]
  - Off label use [None]
